FAERS Safety Report 18031596 (Version 4)
Quarter: 2021Q2

REPORT INFORMATION
  Report Type: Spontaneous
  Country: US (occurrence: US)
  Receive Date: 20200716
  Receipt Date: 20210519
  Transmission Date: 20210717
  Serious: No
  Sender: FDA-Public Use
  Company Number: US-PFIZER INC-2020272379

PATIENT
  Age: 57 Year
  Sex: Male
  Weight: 90.7 kg

DRUGS (4)
  1. INLYTA [Suspect]
     Active Substance: AXITINIB
     Dosage: UNK, (DOSE INCREASED)
     Dates: start: 20200806
  2. INLYTA [Suspect]
     Active Substance: AXITINIB
     Indication: TYPE IIA HYPERLIPIDAEMIA
     Dosage: UNK
     Dates: start: 20200625
  3. INLYTA [Suspect]
     Active Substance: AXITINIB
     Indication: RENAL CANCER
     Dosage: 5 MG, 2X/DAY
     Route: 048
     Dates: start: 20200427
  4. INLYTA [Suspect]
     Active Substance: AXITINIB
     Dosage: UNK
     Dates: start: 20200630

REACTIONS (7)
  - Skin fissures [Unknown]
  - Dry skin [Unknown]
  - Feeding disorder [Unknown]
  - Diarrhoea [Unknown]
  - Renal pain [Unknown]
  - Fatigue [Unknown]
  - Hepatic enzyme increased [Unknown]
